FAERS Safety Report 17293566 (Version 20)
Quarter: 2021Q3

REPORT INFORMATION
  Report Type: Report from Study
  Country: US (occurrence: US)
  Receive Date: 20200121
  Receipt Date: 20210923
  Transmission Date: 20211014
  Serious: Yes (Hospitalization)
  Sender: FDA-Public Use
  Company Number: NVSC2020US007026

PATIENT
  Age: 65 Year
  Sex: Female
  Weight: 55.78 kg

DRUGS (6)
  1. TREPROSTINIL. [Suspect]
     Active Substance: TREPROSTINIL
     Indication: HYPOXIA
     Dosage: 15 NG/KG/MIN, CONT
     Route: 042
  2. TREPROSTINIL. [Suspect]
     Active Substance: TREPROSTINIL
     Dosage: 15 NG/KG/MIN, CONT
     Route: 042
  3. TREPROSTINIL. [Suspect]
     Active Substance: TREPROSTINIL
     Dosage: 15 NG/KG/MIN, CONT
     Route: 042
     Dates: start: 20200106
  4. OPSUMIT [Concomitant]
     Active Substance: MACITENTAN
     Indication: PRODUCT USED FOR UNKNOWN INDICATION
     Dosage: UNK
     Route: 065
  5. TREPROSTINIL. [Suspect]
     Active Substance: TREPROSTINIL
     Indication: PULMONARY ARTERIAL HYPERTENSION
     Dosage: 15 NG/KG/MIN, CONT
     Route: 042
     Dates: start: 20200106
  6. SILDENAFIL CITRATE. [Concomitant]
     Active Substance: SILDENAFIL CITRATE
     Indication: PRODUCT USED FOR UNKNOWN INDICATION
     Dosage: UNK
     Route: 065

REACTIONS (39)
  - Hypoxia [Unknown]
  - Abdominal distension [Unknown]
  - Skin warm [Unknown]
  - Eating disorder [Unknown]
  - Dizziness [Unknown]
  - Asthenia [Unknown]
  - Blood pressure fluctuation [Unknown]
  - Heart rate abnormal [Unknown]
  - Respiratory tract infection [Unknown]
  - PO2 [Unknown]
  - Arthralgia [Recovering/Resolving]
  - Hypotension [Unknown]
  - Peripheral swelling [Unknown]
  - Pruritus [Unknown]
  - Pneumonia [Unknown]
  - Sputum discoloured [Unknown]
  - Skin irritation [Unknown]
  - Productive cough [Recovered/Resolved]
  - Cough [Unknown]
  - Pulmonary embolism [Unknown]
  - Dyspnoea [Unknown]
  - Abdominal pain [Unknown]
  - Erythema [Unknown]
  - Nausea [Recovered/Resolved]
  - Pain in extremity [Not Recovered/Not Resolved]
  - Tremor [Not Recovered/Not Resolved]
  - Muscle tightness [Unknown]
  - Dehydration [Unknown]
  - Insomnia [Unknown]
  - Faeces discoloured [Unknown]
  - Diarrhoea [Unknown]
  - Abdominal pain upper [Unknown]
  - Oxygen saturation decreased [Unknown]
  - Neck pain [Unknown]
  - Rhinorrhoea [Unknown]
  - Joint swelling [Unknown]
  - Weight decreased [Unknown]
  - Abdominal discomfort [Unknown]
  - Vomiting [Recovered/Resolved]

NARRATIVE: CASE EVENT DATE: 20200108
